FAERS Safety Report 13070520 (Version 2)
Quarter: 2017Q1

REPORT INFORMATION
  Report Type: Spontaneous
  Country: NL (occurrence: NL)
  Receive Date: 20161229
  Receipt Date: 20170106
  Transmission Date: 20170428
  Serious: Yes (Death, Hospitalization, Other)
  Sender: FDA-Public Use
  Company Number: NL-APOTEX-2016AP016190

PATIENT
  Age: 45 Year
  Sex: Female

DRUGS (4)
  1. HYDROCHLOORTHIAZIDE APOTEX, TABLETTEN [Suspect]
     Active Substance: HYDROCHLOROTHIAZIDE
     Indication: HYPERTENSION
     Dosage: UNK
     Route: 065
  2. CLOMIPRAMINE [Concomitant]
     Active Substance: CLOMIPRAMINE
     Indication: PRODUCT USED FOR UNKNOWN INDICATION
     Route: 065
  3. METHADONE [Concomitant]
     Active Substance: METHADONE HYDROCHLORIDE
     Indication: PRODUCT USED FOR UNKNOWN INDICATION
     Route: 065
  4. VALSARTAN APOTEX FILMOMHULDE TABLETTEN [Suspect]
     Active Substance: VALSARTAN
     Indication: HYPERTENSION
     Dosage: UNK
     Route: 065

REACTIONS (8)
  - Ventricular fibrillation [Recovered/Resolved]
  - Cardiac arrest [Recovered/Resolved]
  - Lactic acidosis [Recovering/Resolving]
  - Hypokalaemia [Fatal]
  - Hypophosphataemia [Unknown]
  - Loss of consciousness [Unknown]
  - Unresponsive to stimuli [Unknown]
  - Myocardial ischaemia [Unknown]
